FAERS Safety Report 12201838 (Version 1)
Quarter: 2016Q1

REPORT INFORMATION
  Report Type: Other
  Country: GB (occurrence: JP)
  Receive Date: 20160322
  Receipt Date: 20160322
  Transmission Date: 20160526
  Serious: Yes (Hospitalization, Other)
  Sender: FDA-Public Use
  Company Number: JP-CLARIS PHARMASERVICES-1049440

PATIENT
  Age: 25 Year
  Sex: Female

DRUGS (7)
  1. VANCOMYCIN HCL [Concomitant]
     Active Substance: VANCOMYCIN HYDROCHLORIDE
     Route: 048
  2. VANCOMYCIN HCL [Concomitant]
     Active Substance: VANCOMYCIN HYDROCHLORIDE
  3. METRONIDAZOLE. [Suspect]
     Active Substance: METRONIDAZOLE
     Indication: COLITIS ULCERATIVE
  4. PREDNISOLONE. [Concomitant]
     Active Substance: PREDNISOLONE
     Route: 042
  5. CEFAZOLIN SODIUM. [Concomitant]
     Active Substance: CEFAZOLIN SODIUM
     Route: 042
  6. METRONIDAZOLE. [Concomitant]
     Active Substance: METRONIDAZOLE
  7. 5-AMINOSALICYLATE ACID [Concomitant]
     Route: 048

REACTIONS (1)
  - Posterior reversible encephalopathy syndrome [None]
